FAERS Safety Report 19079400 (Version 2)
Quarter: 2021Q2

REPORT INFORMATION
  Report Type: Spontaneous
  Country: JP (occurrence: JP)
  Receive Date: 20210331
  Receipt Date: 20210421
  Transmission Date: 20210717
  Serious: Yes (Other)
  Sender: FDA-Public Use
  Company Number: JP-FERRINGPH-2021FE01114

PATIENT
  Age: 43 Year
  Sex: Female
  Weight: 67.9 kg

DRUGS (3)
  1. THYRADIN S [Concomitant]
     Active Substance: LEVOTHYROXINE SODIUM
     Dosage: 50 UG
  2. PROPESS [Suspect]
     Active Substance: DINOPROSTONE
     Indication: INDUCTION OF CERVIX RIPENING
     Dosage: 1 DF, ONCE/SINGLE
     Route: 067
     Dates: start: 20201001, end: 20201001
  3. ALDOMET [Concomitant]
     Active Substance: METHYLDOPA
     Dosage: 125 MG

REACTIONS (2)
  - Vaginal haemorrhage [Recovered/Resolved]
  - Uterine hypertonus [Unknown]

NARRATIVE: CASE EVENT DATE: 20201001
